FAERS Safety Report 5738120-1 (Version None)
Quarter: 2008Q2

REPORT INFORMATION
  Report Type: 
  Country: None (occurrence: None)
  Receive Date: 20080514
  Receipt Date: 20080502
  Transmission Date: 20081010
  Serious: Yes (Congenital Anomaly, Other)
  Sender: FDA-Public Use
  Company Number: BR-PFIZER INC-2007091396

PATIENT

DRUGS (1)
  1. DOSTINEX [Suspect]
     Route: 064
     Dates: start: 20070401, end: 20070401

REACTIONS (2)
  - DRUG EXPOSURE DURING PREGNANCY [None]
  - FOETAL MALFORMATION [None]
